FAERS Safety Report 23775174 (Version 1)
Quarter: 2024Q2

REPORT INFORMATION
  Report Type: Spontaneous
  Country: US (occurrence: None)
  Receive Date: 20240423
  Receipt Date: 20240423
  Transmission Date: 20240716
  Serious: No
  Sender: FDA-Public Use
  Company Number: None

PATIENT
  Age: 72 Year
  Sex: Male

DRUGS (9)
  1. XDEMVY [Suspect]
     Active Substance: LOTILANER
     Indication: Demodex blepharitis
  2. CIBINQO [Concomitant]
     Active Substance: ABROCITINIB
  3. HYDROCHLOROTHIAZIDE [Concomitant]
     Active Substance: HYDROCHLOROTHIAZIDE
  4. PRAVASTATIN [Concomitant]
     Active Substance: PRAVASTATIN
  5. LEVOXYL [Concomitant]
     Active Substance: LEVOTHYROXINE SODIUM
  6. OMEGA-3 ACIDS [Concomitant]
     Active Substance: OMEGA-3 FATTY ACIDS
  7. ASPIRIN [Concomitant]
     Active Substance: ASPIRIN
  8. NEOIPOLY/DEX [Concomitant]
  9. VITAMIN B-2 [Concomitant]

REACTIONS (2)
  - Hordeolum [None]
  - Blepharitis [None]
